FAERS Safety Report 9719983 (Version 1)
Quarter: 2013Q4

REPORT INFORMATION
  Report Type: Spontaneous
  Country: FR (occurrence: FR)
  Receive Date: 20131128
  Receipt Date: 20131128
  Transmission Date: 20140711
  Serious: Yes (Death)
  Sender: FDA-Public Use
  Company Number: FR-ASTRAZENECA-2013SE86821

PATIENT
  Age: 26297 Day
  Sex: Male

DRUGS (11)
  1. INEXIUM [Suspect]
     Route: 048
  2. BACLOFENE [Suspect]
     Indication: ALCOHOL WITHDRAWAL SYNDROME
     Route: 048
     Dates: start: 201303
  3. ADANCOR [Suspect]
     Route: 048
  4. PLAVIX [Suspect]
     Route: 048
  5. ALLOPURINOL [Suspect]
     Route: 048
  6. BI TILDIEM (DILTIAZEM HYDROCHLORIDE) (300 MILLIGRAM, UNKNOWN) (DILTIAZEM HYDROCHLORIDE) [Suspect]
     Route: 048
  7. TAHOR [Suspect]
     Route: 048
  8. ZOPICLONE [Suspect]
     Route: 048
  9. NITRIDERM [Suspect]
     Route: 048
  10. PROZAC [Suspect]
     Route: 048
  11. ALTEIS [Suspect]
     Route: 048

REACTIONS (1)
  - Sudden death [Fatal]
